FAERS Safety Report 19670265 (Version 1)
Quarter: 2021Q3

REPORT INFORMATION
  Report Type: Spontaneous
  Country: US (occurrence: US)
  Receive Date: 20210806
  Receipt Date: 20210806
  Transmission Date: 20211014
  Serious: Yes (Hospitalization)
  Sender: FDA-Public Use
  Company Number: US-SAOL THERAPEUTICS-2021SAO00077

PATIENT
  Age: 35 Year
  Sex: Male
  Weight: 92.52 kg

DRUGS (5)
  1. TERBINAFINE. [Concomitant]
     Active Substance: TERBINAFINE
  2. TRIAMCINOLONE [Concomitant]
     Active Substance: TRIAMCINOLONE
  3. LORATADINE. [Concomitant]
     Active Substance: LORATADINE
     Dosage: UNK MG
  4. FLUTICASONE. [Concomitant]
     Active Substance: FLUTICASONE
     Dosage: UNK ?G
  5. LIORESAL [Suspect]
     Active Substance: BACLOFEN
     Dosage: 575.9 ?G, \DAY
     Route: 037
     Dates: end: 20210305

REACTIONS (1)
  - Implant site infection [Recovered/Resolved]

NARRATIVE: CASE EVENT DATE: 20210222
